FAERS Safety Report 8020403-6 (Version None)
Quarter: 2012Q1

REPORT INFORMATION
  Report Type: 
  Country: None (occurrence: None)
  Receive Date: 20120103
  Receipt Date: 20111221
  Transmission Date: 20120608
  Serious: Yes (Hospitalization)
  Sender: FDA-Public Use
  Company Number: US-ELI_LILLY_AND_COMPANY-US201105000335

PATIENT
  Sex: Female
  Weight: 93 kg

DRUGS (3)
  1. FORTEO [Suspect]
     Dosage: 20 UG, QD
  2. FORTEO [Suspect]
     Dosage: 20 UG, QD
     Dates: start: 20110917
  3. FORTEO [Suspect]
     Indication: OSTEOPOROSIS
     Dosage: 20 UG, QD
     Dates: end: 20110901

REACTIONS (11)
  - BALANCE DISORDER [None]
  - HERNIA [None]
  - GAIT DISTURBANCE [None]
  - DYSPNOEA [None]
  - HOSPITALISATION [None]
  - MALAISE [None]
  - FALL [None]
  - SCRATCH [None]
  - DECREASED APPETITE [None]
  - URINARY TRACT INFECTION [None]
  - CHOLELITHIASIS [None]
